FAERS Safety Report 8347527-8 (Version None)
Quarter: 2012Q2

REPORT INFORMATION
  Report Type: 
  Country: None (occurrence: None)
  Receive Date: 20120509
  Receipt Date: 20120426
  Transmission Date: 20120825
  Serious: Yes (Life-Threatening, Hospitalization, Other)
  Sender: FDA-Public Use
  Company Number: GB-ROCHE-1063342

PATIENT
  Sex: Male
  Weight: 97 kg

DRUGS (3)
  1. STEROIDS NOS [Concomitant]
     Indication: PRODUCT USED FOR UNKNOWN INDICATION
  2. MABTHERA [Suspect]
     Indication: PRODUCT USED FOR UNKNOWN INDICATION
     Dates: start: 20090215
  3. METHOTREXATE [Concomitant]
     Indication: PRODUCT USED FOR UNKNOWN INDICATION

REACTIONS (9)
  - DECREASED APPETITE [None]
  - HYPERHIDROSIS [None]
  - DRY THROAT [None]
  - DRY MOUTH [None]
  - INTERVERTEBRAL DISCITIS [None]
  - RENAL FAILURE ACUTE [None]
  - CHILLS [None]
  - NECK PAIN [None]
  - SEPSIS [None]
